FAERS Safety Report 11701716 (Version 1)
Quarter: 2015Q4

REPORT INFORMATION
  Report Type: Spontaneous
  Country: US (occurrence: US)
  Receive Date: 20151105
  Receipt Date: 20151105
  Transmission Date: 20160304
  Serious: No
  Sender: FDA-Public Use
  Company Number: US-MALLINCKRODT-T201502113

PATIENT
  Sex: Female
  Weight: 64 kg

DRUGS (3)
  1. FENTANYL TRANSDERMAL SYSTEM [Suspect]
     Active Substance: FENTANYL
     Indication: PAIN
     Dosage: 75 MCG/HR, Q 48HR
     Route: 062
  2. FENTANYL TRANSDERMAL SYSTEM [Suspect]
     Active Substance: FENTANYL
     Dosage: 100 MCG/HR, Q 48HR
     Route: 062
  3. FENTANYL TRANSDERMAL SYSTEM [Suspect]
     Active Substance: FENTANYL
     Dosage: 100 MCG/HR, Q 48HR
     Route: 062

REACTIONS (4)
  - Application site laceration [Not Recovered/Not Resolved]
  - Product physical issue [Not Recovered/Not Resolved]
  - Application site acne [Not Recovered/Not Resolved]
  - Product adhesion issue [Not Recovered/Not Resolved]
